FAERS Safety Report 25567636 (Version 1)
Quarter: 2025Q3

REPORT INFORMATION
  Report Type: Spontaneous
  Country: US (occurrence: None)
  Receive Date: 20250716
  Receipt Date: 20250716
  Transmission Date: 20251020
  Serious: Yes (Other)
  Sender: FDA-CTU
  Company Number: None

PATIENT
  Age: 55 Year
  Sex: Female

DRUGS (3)
  1. ALLERGY EYE RELIEF (HOMEOPATHICS) [Suspect]
     Active Substance: HOMEOPATHICS
     Indication: Eye irritation
     Dosage: OTHER QUANTITY : 33 OUNCE(S)?FREQUENCY : AT BEDTIME?
     Route: 047
     Dates: start: 20250714, end: 20250715
  2. ALLERGY EYE RELIEF (HOMEOPATHICS) [Suspect]
     Active Substance: HOMEOPATHICS
     Indication: Nasopharyngitis
  3. Levo thyroxin [Concomitant]

REACTIONS (5)
  - Visual impairment [None]
  - Instillation site swelling [None]
  - Erythema [None]
  - Periorbital swelling [None]
  - Eye irritation [None]

NARRATIVE: CASE EVENT DATE: 20250714
